FAERS Safety Report 19459479 (Version 1)
Quarter: 2021Q2

REPORT INFORMATION
  Report Type: Spontaneous
  Country: US (occurrence: US)
  Receive Date: 20210625
  Receipt Date: 20210625
  Transmission Date: 20210717
  Serious: No
  Sender: FDA-Public Use
  Company Number: None

PATIENT
  Age: 67 Year
  Sex: Male
  Weight: 117.9 kg

DRUGS (4)
  1. ADDERALL XR 60 MG [Concomitant]
  2. ARMODAFINIL. [Suspect]
     Active Substance: ARMODAFINIL
     Indication: NARCOLEPSY
     Route: 048
     Dates: start: 20210603, end: 20210617
  3. BUPROPION 150 MG XL [Concomitant]
     Active Substance: BUPROPION HYDROCHLORIDE
  4. ESCITALOPRAM 20 MG [Concomitant]
     Active Substance: ESCITALOPRAM OXALATE

REACTIONS (1)
  - Tardive dyskinesia [None]

NARRATIVE: CASE EVENT DATE: 20210617
